FAERS Safety Report 9770608 (Version 2)
Quarter: 2014Q1

REPORT INFORMATION
  Report Type: Spontaneous
  Country: US (occurrence: US)
  Receive Date: 20131218
  Receipt Date: 20140221
  Transmission Date: 20141002
  Serious: Yes (Other)
  Sender: FDA-Public Use
  Company Number: US-GLAXOSMITHKLINE-A1053562A

PATIENT
  Age: 63 Year
  Sex: Female

DRUGS (13)
  1. VENTOLIN HFA [Suspect]
     Indication: ASTHMA
     Dosage: 2PUFF AS REQUIRED
     Route: 055
     Dates: start: 2008
  2. ADVAIR HFA [Suspect]
     Indication: ASTHMA
     Route: 055
  3. PERCOCET [Concomitant]
  4. NATEGLINIDE [Concomitant]
  5. PRILOSEC [Concomitant]
  6. PLAQUENIL [Concomitant]
  7. GLIPIZIDE [Concomitant]
  8. MAGNESIUM OXIDE [Concomitant]
  9. LISINOPRIL [Concomitant]
  10. MONTELUKAST [Concomitant]
  11. METOPROLOL TARTRATE [Concomitant]
  12. HYDROCHLOROTHIAZIDE [Concomitant]
  13. IPRATROPIUM BROMIDE + SALBUTAMOL SULPHATE [Concomitant]

REACTIONS (6)
  - Pneumonia [Unknown]
  - Drug ineffective [Unknown]
  - Cough [Unknown]
  - Retching [Unknown]
  - Dyspnoea [Unknown]
  - Product quality issue [Unknown]
